FAERS Safety Report 21919037 (Version 2)
Quarter: 2023Q1

REPORT INFORMATION
  Report Type: Report from Study
  Country: US (occurrence: US)
  Receive Date: 20230127
  Receipt Date: 20230201
  Transmission Date: 20230417
  Serious: No
  Sender: FDA-Public Use
  Company Number: US-002147023-NVSC2023US014427

PATIENT
  Sex: Male

DRUGS (1)
  1. ENTRESTO [Suspect]
     Active Substance: SACUBITRIL\VALSARTAN
     Indication: Cardiac failure chronic
     Dosage: 49 MG, BID (49-51 MG, DOSE REDUCED FROM 1 BID TO 1/2 BID)
     Route: 048
     Dates: start: 202002

REACTIONS (2)
  - Blood pressure abnormal [Unknown]
  - Wrong technique in product usage process [Unknown]
